FAERS Safety Report 8217479-X (Version None)
Quarter: 2012Q1

REPORT INFORMATION
  Report Type: 
  Country: None (occurrence: None)
  Receive Date: 20120301
  Receipt Date: 20110301
  Transmission Date: 20120608
  Serious: Yes (Other)
  Sender: FDA-Public Use
  Company Number: 269367USA

PATIENT
  Sex: Male

DRUGS (1)
  1. ADDERALL 10 [Suspect]

REACTIONS (8)
  - MYOCARDIAL INFARCTION [None]
  - CHEST DISCOMFORT [None]
  - PALPITATIONS [None]
  - ANXIETY [None]
  - CHEST PAIN [None]
  - PARAESTHESIA [None]
  - DISTURBANCE IN ATTENTION [None]
  - FEELING ABNORMAL [None]
